FAERS Safety Report 10113515 (Version 1)
Quarter: 2014Q2

REPORT INFORMATION
  Report Type: Spontaneous
  Country: US (occurrence: US)
  Receive Date: 20140425
  Receipt Date: 20140425
  Transmission Date: 20141212
  Serious: Yes (Other)
  Sender: FDA-Public Use
  Company Number: US-BAYER-2014-059757

PATIENT
  Age: 52 Year
  Sex: Female
  Weight: 63.49 kg

DRUGS (20)
  1. YAZ [Suspect]
  2. YASMIN [Suspect]
  3. OCELLA [Suspect]
  4. PROZAC [Concomitant]
     Dosage: 20 MG, QD
     Route: 048
     Dates: start: 20110109
  5. CHLORHEXIDINE [Concomitant]
     Dosage: 0.12 %, UNK
     Dates: start: 20110111
  6. HYDROCODONE W/IBUPROFEN [Concomitant]
     Dosage: 7.5 / 200
     Dates: start: 20110111
  7. PENICILLIN [Concomitant]
     Dosage: 500 MG, UNK
     Dates: start: 20110111
  8. ADVAIR [Concomitant]
     Dosage: 100-50 MCG AS NEEDED
  9. XANAX [Concomitant]
     Dosage: 0.25 MG, QD
     Route: 048
  10. IBUPROFEN [Concomitant]
     Dosage: 200 MG, 2 ORAL AS NEEDED
     Route: 048
  11. CALCIUM GLUBIONATE [Concomitant]
     Dosage: 1.5 GM/5 ML ORAL DAILY
     Route: 048
  12. CALCIUM CARBONATE [Concomitant]
     Dosage: 1250 MG/5 ML ORAL DAILY
     Route: 048
  13. FISH OIL [Concomitant]
     Dosage: 1000-30 MG ORAL DAILY
     Route: 048
  14. COQ10 [Concomitant]
     Dosage: 200 MG, QD
     Route: 048
  15. PAXIL [Concomitant]
     Indication: RASH
  16. ZOLOFT [Concomitant]
     Indication: SEDATION
  17. CELEXA [Concomitant]
  18. WELLBUTRIN [Concomitant]
  19. CYMBALTA [Concomitant]
     Dosage: 60 MG, UNK
  20. LEXAPRO [Concomitant]
     Dosage: 10 MG, QD

REACTIONS (1)
  - Deep vein thrombosis [None]
